FAERS Safety Report 8895750 (Version 2)
Quarter: 2012Q4

REPORT INFORMATION
  Report Type: 
  Country: IN (occurrence: IN)
  Receive Date: 20121108
  Receipt Date: 20121127
  Transmission Date: 20130627
  Serious: Yes (Other)
  Sender: FDA-Public Use
  Company Number: IN-ROCHE-1152425

PATIENT
  Age: 40 Year
  Sex: Male

DRUGS (2)
  1. BEVACIZUMAB [Suspect]
     Indication: CORNEAL NEOVASCULARISATION
     Dosage: 2.5 mg/0.1 mL
     Route: 057
  2. BEVACIZUMAB [Suspect]
     Indication: OFF LABEL USE

REACTIONS (4)
  - Wound dehiscence [Unknown]
  - Ischaemia [Unknown]
  - Ulcerative keratitis [Unknown]
  - Impaired healing [Unknown]
